FAERS Safety Report 18136141 (Version 2)
Quarter: 2020Q3

REPORT INFORMATION
  Report Type: Spontaneous
  Country: US (occurrence: US)
  Receive Date: 20200811
  Receipt Date: 20200821
  Transmission Date: 20201103
  Serious: No
  Sender: FDA-Public Use
  Company Number: US-TEVA-2020-US-1812418

PATIENT
  Age: 76 Year
  Sex: Female

DRUGS (1)
  1. ALPRAZOLAM ACTAVIS [Suspect]
     Active Substance: ALPRAZOLAM
     Route: 065

REACTIONS (3)
  - Abdominal discomfort [Unknown]
  - Flatulence [Not Recovered/Not Resolved]
  - Vomiting [Not Recovered/Not Resolved]
